FAERS Safety Report 21491923 (Version 1)
Quarter: 2022Q4

REPORT INFORMATION
  Report Type: Spontaneous
  Country: US (occurrence: US)
  Receive Date: 20221021
  Receipt Date: 20221021
  Transmission Date: 20230113
  Serious: No
  Sender: FDA-Public Use
  Company Number: US-CELLTRION INC.-2022US011769

PATIENT

DRUGS (1)
  1. INFLECTRA [Suspect]
     Active Substance: INFLIXIMAB-DYYB
     Indication: Product used for unknown indication
     Dosage: 350 MG, CYCLIC (EVERY 4 WEEKS (QUANTITY: 4 VIALS REFILLS: 11)
     Route: 042

REACTIONS (1)
  - Off label use [Unknown]
